FAERS Safety Report 10765986 (Version 1)
Quarter: 2015Q1

REPORT INFORMATION
  Report Type: Spontaneous
  Country: US (occurrence: None)
  Receive Date: 20150204
  Receipt Date: 20150204
  Transmission Date: 20150721
  Serious: Yes (Disabling)
  Sender: FDA-Public Use
  Company Number: None

PATIENT
  Age: 51 Year
  Sex: Female
  Weight: 83.92 kg

DRUGS (1)
  1. AVELOX [Suspect]
     Active Substance: MOXIFLOXACIN HYDROCHLORIDE
     Indication: SINUSITIS
     Dosage: 1 PER DAY
     Dates: start: 20150105, end: 20150108

REACTIONS (10)
  - Musculoskeletal pain [None]
  - Abdominal pain upper [None]
  - Tremor [None]
  - Musculoskeletal stiffness [None]
  - Sciatica [None]
  - Hypoaesthesia [None]
  - Nightmare [None]
  - Neck pain [None]
  - Insomnia [None]
  - Influenza [None]

NARRATIVE: CASE EVENT DATE: 20150105
